FAERS Safety Report 17043427 (Version 1)
Quarter: 2019Q4

REPORT INFORMATION
  Report Type: Spontaneous
  Country: US (occurrence: US)
  Receive Date: 20191118
  Receipt Date: 20191118
  Transmission Date: 20200122
  Serious: No
  Sender: FDA-Public Use
  Company Number: US-THERAPEUTICSMD-2019TMD02348

PATIENT
  Sex: Female
  Weight: 84.81 kg

DRUGS (9)
  1. JUICE PLUS [Concomitant]
     Active Substance: DIETARY SUPPLEMENT
  2. VITAMIN C [Concomitant]
     Active Substance: ASCORBIC ACID
  3. NUVIGIL [Concomitant]
     Active Substance: ARMODAFINIL
  4. BIJUVA [Suspect]
     Active Substance: ESTRADIOL\PROGESTERONE
     Dosage: 1 CAPSULES, 1X/DAY
     Route: 048
     Dates: start: 2019
  5. CYMBALTA [Concomitant]
     Active Substance: DULOXETINE HYDROCHLORIDE
  6. BIOTIN [Concomitant]
     Active Substance: BIOTIN
  7. PLAQUENIL [Concomitant]
     Active Substance: HYDROXYCHLOROQUINE SULFATE
  8. VITAMIN D3 [Concomitant]
     Active Substance: CHOLECALCIFEROL
  9. BIJUVA [Suspect]
     Active Substance: ESTRADIOL\PROGESTERONE
     Indication: HORMONE REPLACEMENT THERAPY
     Dosage: 1 CAPSULES, 1X/DAY
     Route: 048
     Dates: start: 20190601, end: 201907

REACTIONS (2)
  - Metrorrhagia [Recovered/Resolved]
  - Endometrial thickening [Unknown]

NARRATIVE: CASE EVENT DATE: 2019
